FAERS Safety Report 5502177-3 (Version None)
Quarter: 2007Q4

REPORT INFORMATION
  Report Type: 
  Country: None (occurrence: None)
  Receive Date: 20071030
  Receipt Date: 20071026
  Transmission Date: 20080405
  Serious: Yes (Other)
  Sender: FDA-Public Use
  Company Number: US-ASTRAZENECA-2007UW24889

PATIENT
  Age: 64 Year
  Sex: Male
  Weight: 102.1 kg

DRUGS (8)
  1. CRESTOR [Suspect]
     Indication: BLOOD CHOLESTEROL INCREASED
     Route: 048
  2. CRESTOR [Suspect]
     Dosage: DECREASED
     Route: 048
  3. PLAVIX [Concomitant]
  4. ALTACE [Concomitant]
  5. PREVACID [Concomitant]
  6. LEXAPRO [Concomitant]
  7. ASPIRIN [Concomitant]
  8. COQ10 [Concomitant]

REACTIONS (2)
  - ILL-DEFINED DISORDER [None]
  - PAIN [None]
